FAERS Safety Report 24023838 (Version 1)
Quarter: 2024Q2

REPORT INFORMATION
  Report Type: Report from Study
  Country: ZA (occurrence: ZA)
  Receive Date: 20240627
  Receipt Date: 20240627
  Transmission Date: 20240716
  Serious: No
  Sender: FDA-Public Use
  Company Number: ZA-ROCHE-3574770

PATIENT
  Sex: Male

DRUGS (1)
  1. VABYSMO [Suspect]
     Active Substance: FARICIMAB\FARICIMAB-SVOA
     Indication: Macular degeneration
     Dosage: ON 03/MAY/2024 RECEIVED INJECTION OF VABYSMO.
     Route: 065
     Dates: start: 20240402

REACTIONS (2)
  - Off label use [Unknown]
  - No adverse event [Unknown]
